FAERS Safety Report 8921259 (Version 1)
Quarter: 2012Q4

REPORT INFORMATION
  Report Type: 
  Country: US (occurrence: US)
  Receive Date: 20121121
  Receipt Date: 20121121
  Transmission Date: 20130627
  Serious: Yes (Hospitalization, Other)
  Sender: FDA-Public Use
  Company Number: US-VERTEX PHARMACEUTICAL INC.-2012-024993

PATIENT

DRUGS (1)
  1. INCIVEK [Suspect]
     Indication: HEPATITIS C

REACTIONS (5)
  - Hepatic failure [Unknown]
  - Bacteraemia [Unknown]
  - Pneumonia bacterial [Unknown]
  - Renal abscess [Unknown]
  - Intervertebral discitis [Unknown]
